FAERS Safety Report 10389948 (Version 1)
Quarter: 2014Q3

REPORT INFORMATION
  Report Type: Spontaneous
  Country: DE (occurrence: None)
  Receive Date: 20140813
  Receipt Date: 20140813
  Transmission Date: 20150326
  Serious: Yes (Death)
  Sender: FDA-Public Use
  Company Number: IMP_07818_2014

PATIENT
  Age: 52 Year
  Sex: Female

DRUGS (3)
  1. THIORIDAZINE [Concomitant]
     Active Substance: THIORIDAZINE
     Indication: PRODUCT USED FOR UNKNOWN INDICATION
     Dosage: DF UNKNOWN
  2. LEVOMEPROMAZINE [Suspect]
     Active Substance: LEVOMEPROMAZINE
  3. VALPROIC ACID. [Suspect]
     Active Substance: VALPROIC ACID
     Indication: IMPULSE-CONTROL DISORDER
     Dosage: DF UNKNOWN

REACTIONS (2)
  - Hepatic failure [None]
  - Drug-induced liver injury [None]
